FAERS Safety Report 8249880-2 (Version None)
Quarter: 2012Q2

REPORT INFORMATION
  Report Type: 
  Country: None (occurrence: None)
  Receive Date: 20120402
  Receipt Date: 20120327
  Transmission Date: 20120825
  Serious: Yes (Hospitalization)
  Sender: FDA-Public Use
  Company Number: PHEH2012US006754

PATIENT
  Sex: Male
  Weight: 111.57 kg

DRUGS (3)
  1. GILENYA [Suspect]
     Indication: MULTIPLE SCLEROSIS
     Dates: end: 20120101
  2. COPAXONE [Suspect]
     Dosage: 20 MG, QD
     Route: 058
     Dates: start: 20120211
  3. COPAXONE [Suspect]
     Indication: MULTIPLE SCLEROSIS
     Dosage: 20 MG, QD
     Route: 058

REACTIONS (3)
  - SEPSIS [None]
  - DRUG INEFFECTIVE [None]
  - PNEUMONIA [None]
